FAERS Safety Report 9358825 (Version 1)
Quarter: 2013Q2

REPORT INFORMATION
  Report Type: Spontaneous
  Country: BR (occurrence: BR)
  Receive Date: 20130620
  Receipt Date: 20130620
  Transmission Date: 20140414
  Serious: Yes (Hospitalization)
  Sender: FDA-Public Use
  Company Number: PHHY2013BR061801

PATIENT
  Age: 61 Year
  Sex: Male

DRUGS (15)
  1. SIMULECT [Suspect]
     Indication: RENAL TRANSPLANT
     Dosage: UNK
  2. MYFORTIC [Suspect]
     Indication: IMMUNOSUPPRESSION
     Dosage: 1440 MG, UNK
     Dates: start: 20101126
  3. TACROLIMUS [Concomitant]
     Indication: IMMUNOSUPPRESSION
     Dosage: 12 MG, 0.1 MG/KG/DOSE
  4. TACROLIMUS [Concomitant]
     Dosage: 5 MG, QD
  5. CORTICOSTEROIDS [Concomitant]
  6. PREDNISONE [Concomitant]
     Indication: IMMUNOSUPPRESSION
     Dosage: 20 MG, UNK
  7. PREDNISONE [Concomitant]
     Dosage: UNK UKN, UNK
     Dates: start: 20100423
  8. PREDNISONE [Concomitant]
     Dosage: UNK UKN, UNK
     Dates: start: 20100809
  9. PREDNISONE [Concomitant]
     Dosage: UNK UKN, UNK
     Dates: start: 201110
  10. PREDNISONE [Concomitant]
     Dosage: UNK UKN, UNK
     Dates: start: 201210
  11. EVEROLIMUS [Concomitant]
     Indication: IMMUNOSUPPRESSION
     Dosage: 2 MG, UNK
     Dates: start: 20101126
  12. EVEROLIMUS [Concomitant]
     Dosage: 1.5 UNK, UNK
     Dates: start: 201110
  13. EVEROLIMUS [Concomitant]
     Dosage: 1.5 UNK, UNK
     Dates: start: 201210
  14. AZATHIOPRINE [Concomitant]
     Indication: IMMUNOSUPPRESSION
     Dosage: 125 MG, UNK
     Dates: start: 201110
  15. AZATHIOPRINE [Concomitant]
     Dosage: 150 MG, UNK
     Dates: start: 201210

REACTIONS (6)
  - Complications of transplanted kidney [Unknown]
  - Renal arteriosclerosis [Unknown]
  - Renal tubular necrosis [Unknown]
  - Blood creatinine increased [Unknown]
  - Urinary tract infection bacterial [Unknown]
  - Hypertension [Unknown]
